FAERS Safety Report 25532447 (Version 1)
Quarter: 2025Q3

REPORT INFORMATION
  Report Type: Spontaneous
  Country: US (occurrence: US)
  Receive Date: 20250709
  Receipt Date: 20250709
  Transmission Date: 20251020
  Serious: No
  Sender: MADRIGAL PHARMACEUTICALS
  Company Number: US-MADRIGAL PHARMACEUTICALS, INC-2025REZ3605

PATIENT

DRUGS (1)
  1. REZDIFFRA [Suspect]
     Active Substance: RESMETIROM
     Indication: Product used for unknown indication
     Route: 065

REACTIONS (3)
  - Hepatic pain [Unknown]
  - Aspartate aminotransferase increased [Unknown]
  - Alanine aminotransferase increased [Unknown]
